FAERS Safety Report 7354131-7 (Version None)
Quarter: 2011Q1

REPORT INFORMATION
  Report Type: 
  Country: None (occurrence: None)
  Receive Date: 20110315
  Receipt Date: 20110303
  Transmission Date: 20110831
  Serious: Yes (Hospitalization, Other)
  Sender: FDA-Public Use
  Company Number: FR-BRISTOL-MYERS SQUIBB COMPANY-15591456

PATIENT
  Age: 83 Year
  Sex: Female

DRUGS (9)
  1. FUROSEMIDE [Interacting]
     Route: 048
     Dates: end: 20090908
  2. ZOPICLONE [Concomitant]
  3. IRBESARTAN [Suspect]
     Dosage: TAB
     Route: 048
     Dates: end: 20090908
  4. KARDEGIC [Concomitant]
  5. ALLOPURINOL [Concomitant]
  6. METFORMIN HCL [Interacting]
     Route: 048
     Dates: end: 20090908
  7. ATENOLOL [Interacting]
     Route: 048
     Dates: end: 20090908
  8. VOLTAREN [Interacting]
     Route: 048
     Dates: end: 20090908
  9. NEXIUM [Concomitant]

REACTIONS (7)
  - DIZZINESS [None]
  - RENAL FAILURE ACUTE [None]
  - DEHYDRATION [None]
  - MALAISE [None]
  - ORTHOSTATIC HYPOTENSION [None]
  - AMYOTROPHY [None]
  - DRUG INTERACTION [None]
